FAERS Safety Report 6788090-2 (Version None)
Quarter: 2010Q2

REPORT INFORMATION
  Report Type: 
  Country: None (occurrence: None)
  Receive Date: 20100623
  Receipt Date: 20080201
  Transmission Date: 20101027
  Serious: Yes (Hospitalization, Other)
  Sender: FDA-Public Use
  Company Number: US-PFIZER INC-2007099412

PATIENT
  Sex: Male
  Weight: 83 kg

DRUGS (17)
  1. SUTENT [Suspect]
     Indication: RENAL CELL CARCINOMA
     Route: 048
     Dates: start: 20071012, end: 20071101
  2. NOVOLOG [Suspect]
  3. COMPAZINE [Concomitant]
     Indication: NAUSEA
     Route: 048
  4. OXYCODONE HCL [Concomitant]
     Route: 048
  5. DILAUDID [Concomitant]
     Route: 048
  6. ACETYLSALICYLIC ACID [Concomitant]
     Route: 048
  7. DOXAZOSIN MESYLATE [Concomitant]
     Route: 048
  8. ALBUTEROL [Concomitant]
     Route: 055
  9. SPIRIVA [Concomitant]
     Route: 055
  10. INSULIN [Concomitant]
  11. GLIPIZIDE [Concomitant]
     Route: 048
  12. HYDROCHLOROTHIAZIDE [Concomitant]
     Route: 048
  13. METOPROLOL TARTRATE [Concomitant]
     Route: 048
  14. PRAVASTATIN [Concomitant]
     Route: 048
  15. FLUOXETINE HCL [Concomitant]
     Route: 048
  16. RANITIDINE [Concomitant]
     Route: 048
  17. FENTANYL [Concomitant]

REACTIONS (2)
  - BLOOD CREATININE INCREASED [None]
  - HYPOGLYCAEMIA [None]
